FAERS Safety Report 4294481-4 (Version None)
Quarter: 2004Q1

REPORT INFORMATION
  Report Type: 
  Country: None (occurrence: None)
  Receive Date: 20040211
  Receipt Date: 20040129
  Transmission Date: 20041129
  Serious: Yes (Hospitalization, Other)
  Sender: FDA-Public Use
  Company Number: 2004004479

PATIENT
  Age: 49 Year
  Sex: Female
  Weight: 95 kg

DRUGS (7)
  1. LIPITOR [Suspect]
     Indication: HYPERCHOLESTEROLAEMIA
     Dosage: 40 MG (DAILY), ORAL
     Route: 048
     Dates: end: 20031225
  2. CYCLOSPORINE [Concomitant]
     Indication: IMMUNOSUPPRESSION
     Dosage: ORAL
     Route: 048
  3. WARFARIN SODIUM [Concomitant]
  4. SIROLIMUS (SIROLIMUS) [Concomitant]
  5. DIDRONEL PMO^NORWICH EATON^ (CALCIUM CARBONATE, ETIDRONATE DISODIUM) [Concomitant]
  6. RANITIDINE [Concomitant]
  7. KLIOGEST ^NOV INDUSTRI^ (ESTRADIOL, NORETHISTERONE) [Concomitant]

REACTIONS (5)
  - HAEMATOMA [None]
  - JAUNDICE [None]
  - RHABDOMYOLYSIS [None]
  - STAPHYLOCOCCAL SEPSIS [None]
  - SUPERINFECTION [None]
